FAERS Safety Report 7385873-5 (Version None)
Quarter: 2011Q1

REPORT INFORMATION
  Report Type: 
  Country: None (occurrence: None)
  Receive Date: 20110331
  Receipt Date: 20110324
  Transmission Date: 20110831
  Serious: No
  Sender: FDA-Public Use
  Company Number: US-PFIZER INC-2011066769

PATIENT
  Age: 3 Year
  Sex: Female

DRUGS (1)
  1. CLEOCIN [Suspect]
     Indication: SINUSITIS
     Dosage: UNK

REACTIONS (2)
  - DRUG INEFFECTIVE [None]
  - MEDICATION ERROR [None]
